FAERS Safety Report 10699832 (Version 2)
Quarter: 2015Q2

REPORT INFORMATION
  Report Type: Report from Study
  Country: US (occurrence: US)
  Receive Date: 20150109
  Receipt Date: 20150402
  Transmission Date: 20150821
  Serious: Yes (Hospitalization, Other)
  Sender: FDA-Public Use
  Company Number: US-GILEAD-2015-0130717

PATIENT
  Age: 90 Year
  Sex: Female

DRUGS (14)
  1. METOPROLOL [Concomitant]
     Active Substance: METOPROLOL
  2. HYDRALAZINE [Concomitant]
     Active Substance: HYDRALAZINE HYDROCHLORIDE
  3. PENTOXIFYLLINE. [Concomitant]
     Active Substance: PENTOXIFYLLINE
  4. NITROSTAT [Concomitant]
     Active Substance: NITROGLYCERIN
  5. COLACE [Concomitant]
     Active Substance: DOCUSATE SODIUM
  6. NEXIUM [Concomitant]
     Active Substance: ESOMEPRAZOLE MAGNESIUM
  7. LEVOTHYROXINE [Concomitant]
     Active Substance: LEVOTHYROXINE
  8. NIFEDIPINE. [Concomitant]
     Active Substance: NIFEDIPINE
  9. AMBRISENTAN [Suspect]
     Active Substance: AMBRISENTAN
     Indication: PULMONARY HYPERTENSION
     Dosage: 5 MG, QD
     Route: 065
     Dates: start: 20141204
  10. LEVAQUIN [Concomitant]
     Active Substance: LEVOFLOXACIN
  11. NAMENDA [Concomitant]
     Active Substance: MEMANTINE HYDROCHLORIDE
  12. VITAMIN B6 [Concomitant]
     Active Substance: PYRIDOXINE HYDROCHLORIDE
  13. BABY ASPIRIN [Concomitant]
     Active Substance: ASPIRIN
  14. OXYGEN. [Concomitant]
     Active Substance: OXYGEN

REACTIONS (4)
  - Dialysis [Unknown]
  - Anaemia [Unknown]
  - Haemoglobin decreased [Not Recovered/Not Resolved]
  - Pneumonia [Not Recovered/Not Resolved]
